FAERS Safety Report 6382119-1 (Version None)
Quarter: 2009Q3

REPORT INFORMATION
  Report Type: 
  Country: None (occurrence: None)
  Receive Date: 20090930
  Receipt Date: 20090924
  Transmission Date: 20100115
  Serious: Yes (Hospitalization)
  Sender: FDA-Public Use
  Company Number: PHHY2009JP41811

PATIENT
  Age: 77 Year
  Sex: Female

DRUGS (2)
  1. VOLTAREN [Suspect]
     Indication: HERPES ZOSTER
     Dosage: UNK
     Route: 048
     Dates: start: 20080801
  2. VALTREX [Concomitant]
     Indication: HERPES ZOSTER
     Dosage: 3 G, UNK
     Route: 048

REACTIONS (7)
  - CALCULUS URETERIC [None]
  - DYSPNOEA [None]
  - EATING DISORDER [None]
  - ELECTROLYTE IMBALANCE [None]
  - HYDRONEPHROSIS [None]
  - MALAISE [None]
  - RENAL FAILURE ACUTE [None]
